FAERS Safety Report 20308761 (Version 1)
Quarter: 2022Q1

REPORT INFORMATION
  Report Type: Report from Study
  Country: US (occurrence: None)
  Receive Date: 20220107
  Receipt Date: 20220107
  Transmission Date: 20220423
  Serious: Yes (Hospitalization)
  Sender: FDA-Public Use
  Company Number: US-ROCHE-2992294

PATIENT
  Age: 73 Year
  Sex: Female
  Weight: 44.5 kg

DRUGS (3)
  1. ATEZOLIZUMAB [Suspect]
     Active Substance: ATEZOLIZUMAB
     Indication: Small cell lung cancer
     Dosage: LAST ADMINISTERED DATE 20-JUL-2021
     Route: 042
     Dates: start: 20210223
  2. CARBOPLATIN [Suspect]
     Active Substance: CARBOPLATIN
     Indication: Small cell lung cancer
     Dosage: LAST ADMINISTERED DATE 27-APR-2021
     Route: 065
     Dates: start: 20210202, end: 20210427
  3. ETOPOSIDE [Suspect]
     Active Substance: ETOPOSIDE
     Indication: Small cell lung cancer
     Dosage: LAST ADMINISTERED DATE 27-APR-2021
     Route: 065
     Dates: start: 20210202, end: 20210427

REACTIONS (1)
  - Pneumonitis [Not Recovered/Not Resolved]

NARRATIVE: CASE EVENT DATE: 20210802
